FAERS Safety Report 7602171-2 (Version None)
Quarter: 2011Q3

REPORT INFORMATION
  Report Type: 
  Country: None (occurrence: None)
  Receive Date: 20110711
  Receipt Date: 20110701
  Transmission Date: 20111222
  Serious: Yes (Hospitalization)
  Sender: FDA-Public Use
  Company Number: ES-ASTRAZENECA-2011SE31830

PATIENT
  Age: 59 Year
  Sex: Male
  Weight: 79 kg

DRUGS (3)
  1. CRESTOR [Suspect]
     Indication: DYSLIPIDAEMIA
     Route: 048
     Dates: start: 20100701, end: 20110301
  2. OMEPRAZOLE [Concomitant]
     Route: 048
     Dates: start: 19960101
  3. METFORMIN HCL [Concomitant]
     Route: 048
     Dates: start: 20090101

REACTIONS (3)
  - TRANSAMINASES ABNORMAL [None]
  - CHOLELITHIASIS [None]
  - LIPASE ABNORMAL [None]
